FAERS Safety Report 7960348-0 (Version None)
Quarter: 2011Q4

REPORT INFORMATION
  Report Type: 
  Country: None (occurrence: None)
  Receive Date: 20111206
  Receipt Date: 20111121
  Transmission Date: 20120403
  Serious: Yes (Other)
  Sender: FDA-Public Use
  Company Number: NL-ELI_LILLY_AND_COMPANY-NL200907003691

PATIENT
  Sex: Female

DRUGS (1)
  1. SOMATROPIN RDNA [Suspect]
     Indication: GROWTH HORMONE DEFICIENCY
     Dosage: 0.2 MG, QD
     Route: 058
     Dates: start: 20020827, end: 20090122

REACTIONS (3)
  - ABORTION SPONTANEOUS [None]
  - INSULIN-LIKE GROWTH FACTOR DECREASED [None]
  - MATERNAL EXPOSURE DURING PREGNANCY [None]
